FAERS Safety Report 8481057 (Version 7)
Quarter: 2012Q4

REPORT INFORMATION
  Report Type: 
  Country: US (occurrence: US)
  Receive Date: 20120328
  Receipt Date: 20121102
  Transmission Date: 20130627
  Serious: Yes (Hospitalization, Disabling, Other)
  Sender: FDA-Public Use
  Company Number: US-009507513-1203USA03478

PATIENT

DRUGS (4)
  1. FOSAMAX [Suspect]
     Indication: OSTEOPENIA
     Dosage: 10 mg, UNK
     Route: 048
     Dates: start: 20000613, end: 20031105
  2. FOSAMAX [Suspect]
     Dosage: 70 mg, QW
     Route: 048
     Dates: start: 20031105, end: 20081009
  3. ALENDRONATE SODIUM [Suspect]
     Indication: OSTEOPOROSIS
     Dosage: 70 mg, qw
     Route: 048
     Dates: start: 20090326, end: 20091105
  4. ALENDRONATE SODIUM [Suspect]
     Dosage: 70 mg, UNK
     Route: 048
     Dates: start: 20090325

REACTIONS (48)
  - Hip fracture [Not Recovered/Not Resolved]
  - Closed fracture manipulation [Not Recovered/Not Resolved]
  - Osteoporosis [Not Recovered/Not Resolved]
  - Stress fracture [Not Recovered/Not Resolved]
  - Femur fracture [Not Recovered/Not Resolved]
  - Low turnover osteopathy [Not Recovered/Not Resolved]
  - Fall [Unknown]
  - Adverse event [Unknown]
  - Brain oedema [Unknown]
  - Mental status changes [Unknown]
  - Presyncope [Unknown]
  - Orthostatic hypotension [Unknown]
  - Hypovolaemia [Unknown]
  - Appendicectomy [Unknown]
  - Deafness bilateral [Unknown]
  - Visual field defect [Unknown]
  - Lumbar vertebral fracture [Unknown]
  - Tonsillectomy [Unknown]
  - Adenoidectomy [Unknown]
  - Tooth disorder [Unknown]
  - Chronic obstructive pulmonary disease [Not Recovered/Not Resolved]
  - Spinal compression fracture [Unknown]
  - Kyphosis [Unknown]
  - Cutis laxa [Unknown]
  - Eyelid retraction [Unknown]
  - Benign prostatic hyperplasia [Unknown]
  - Pulmonary mass [Unknown]
  - Osteoarthritis [Unknown]
  - Insomnia [Unknown]
  - Stress [Unknown]
  - High density lipoprotein decreased [Unknown]
  - Colon adenoma [Unknown]
  - Alcohol abuse [Unknown]
  - Helicobacter infection [Unknown]
  - Hypoxia [Not Recovered/Not Resolved]
  - Treatment noncompliance [Unknown]
  - Essential tremor [Not Recovered/Not Resolved]
  - Cerebral small vessel ischaemic disease [Not Recovered/Not Resolved]
  - Cerebral arteriosclerosis [Unknown]
  - Pulmonary fibrosis [Unknown]
  - Transient ischaemic attack [Unknown]
  - Post-tussive vomiting [Unknown]
  - Emphysema [Unknown]
  - Vertebroplasty [Unknown]
  - Hallucination [Recovered/Resolved]
  - Headache [Recovered/Resolved]
  - Gastritis [Unknown]
  - Vomiting [Unknown]
